FAERS Safety Report 18351978 (Version 2)
Quarter: 2020Q4

REPORT INFORMATION
  Report Type: Spontaneous
  Country: SE (occurrence: SE)
  Receive Date: 20201006
  Receipt Date: 20201216
  Transmission Date: 20210114
  Serious: Yes (Hospitalization, Other)
  Sender: FDA-Public Use
  Company Number: SE-JNJFOC-20200943631

PATIENT
  Age: 33 Year
  Sex: Female

DRUGS (8)
  1. CARIPRAZINE [Suspect]
     Active Substance: CARIPRAZINE
     Route: 048
     Dates: start: 20200527
  2. HALDOL [Suspect]
     Active Substance: HALOPERIDOL
     Indication: PRODUCT USED FOR UNKNOWN INDICATION
     Route: 065
  3. CARIPRAZINE [Suspect]
     Active Substance: CARIPRAZINE
     Indication: PSYCHOTIC DISORDER
     Route: 048
     Dates: start: 2020
  4. LEVAXIN [Concomitant]
     Active Substance: LEVOTHYROXINE SODIUM
     Indication: PRODUCT USED FOR UNKNOWN INDICATION
  5. LATUDA [Suspect]
     Active Substance: LURASIDONE HYDROCHLORIDE
     Indication: PRODUCT USED FOR UNKNOWN INDICATION
     Route: 065
  6. RISPERDAL [Suspect]
     Active Substance: RISPERIDONE
     Indication: PRODUCT USED FOR UNKNOWN INDICATION
     Route: 065
  7. ABILIFY [Suspect]
     Active Substance: ARIPIPRAZOLE
     Indication: PRODUCT USED FOR UNKNOWN INDICATION
     Route: 065
  8. SERTRALINE [Concomitant]
     Active Substance: SERTRALINE HYDROCHLORIDE
     Indication: PRODUCT USED FOR UNKNOWN INDICATION
     Route: 065

REACTIONS (9)
  - Aphasia [Recovered/Resolved]
  - Visual field defect [Recovering/Resolving]
  - Weight increased [Unknown]
  - Post procedural infection [Unknown]
  - Vision blurred [Unknown]
  - Idiopathic intracranial hypertension [Unknown]
  - Blood pressure decreased [Recovering/Resolving]
  - Post procedural haemorrhage [Recovered/Resolved]
  - Dizziness [Unknown]

NARRATIVE: CASE EVENT DATE: 2020
